FAERS Safety Report 8870010 (Version 2)
Quarter: 2013Q1

REPORT INFORMATION
  Report Type: Spontaneous
  Country: US (occurrence: US)
  Receive Date: 20121028
  Receipt Date: 20130206
  Transmission Date: 20140127
  Serious: No
  Sender: FDA-Public Use
  Company Number: US-009507513-1210USA012307

PATIENT
  Age: 47 Year
  Sex: Male
  Weight: 81.63 kg

DRUGS (4)
  1. VICTRELIS [Suspect]
     Dosage: 800 MG, TID
     Route: 048
  2. PEGASYS [Suspect]
     Dosage: 180 MICROGRAM
  3. RIBAVIRIN [Suspect]
  4. LISINOPRIL [Concomitant]

REACTIONS (7)
  - Urinary retention [Unknown]
  - Thirst [Unknown]
  - Pollakiuria [Unknown]
  - Pollakiuria [Unknown]
  - Weight decreased [Unknown]
  - Dysgeusia [Unknown]
  - Anaemia [Unknown]
